FAERS Safety Report 9206551 (Version 1)
Quarter: 2013Q2

REPORT INFORMATION
  Report Type: Spontaneous
  Country: US (occurrence: None)
  Receive Date: 20130401
  Receipt Date: 20130401
  Transmission Date: 20140414
  Serious: Yes (Hospitalization)
  Sender: FDA-Public Use
  Company Number: None

PATIENT
  Age: 53 Year
  Sex: Male
  Weight: 89.3 kg

DRUGS (1)
  1. ERBITUX (CETUXIMAB) [Suspect]

REACTIONS (5)
  - Weight decreased [None]
  - Aphagia [None]
  - Nausea [None]
  - Vomiting [None]
  - Drug effect decreased [None]
